FAERS Safety Report 12329003 (Version 1)
Quarter: 2016Q2

REPORT INFORMATION
  Report Type: Spontaneous
  Country: None (occurrence: CO)
  Receive Date: 20160503
  Receipt Date: 20160503
  Transmission Date: 20160815
  Serious: Yes (Other)
  Sender: FDA-Public Use
  Company Number: CO-POPULATION COUNCIL, INC.-1051351

PATIENT
  Sex: Female

DRUGS (1)
  1. JADELLE [Suspect]
     Active Substance: LEVONORGESTREL
     Dates: start: 2013

REACTIONS (3)
  - Drug ineffective [Recovered/Resolved]
  - Abortion [Recovered/Resolved]
  - Pregnancy with implant contraceptive [Recovered/Resolved]
